FAERS Safety Report 6293890-1 (Version None)
Quarter: 2009Q3

REPORT INFORMATION
  Report Type: 
  Country: None (occurrence: None)
  Receive Date: 20090730
  Receipt Date: 20090722
  Transmission Date: 20100115
  Serious: Yes (Hospitalization)
  Sender: FDA-Public Use
  Company Number: 2009AL002227

PATIENT
  Age: 48 Year
  Sex: Male

DRUGS (25)
  1. DIGOXIN [Suspect]
     Dosage: 0.25 MG, DAILY, PO
     Route: 048
     Dates: start: 20000401, end: 20090226
  2. BYETTA [Concomitant]
  3. NOVOFINE [Concomitant]
  4. METOPROLOL SUCCINATE [Concomitant]
  5. OXYCODONE [Concomitant]
  6. ALLOPURINOL [Concomitant]
  7. VYTORIN [Concomitant]
  8. ULTRAM [Concomitant]
  9. ZYLOPRIM [Concomitant]
  10. PRAVASTATIN [Concomitant]
  11. PRANDIN [Concomitant]
  12. WARFARIN SODIUM [Concomitant]
  13. AZITHROMYCIN [Concomitant]
  14. MUCINEX [Concomitant]
  15. COLCHICINE [Concomitant]
  16. TRAMADOL HCL [Concomitant]
  17. ALBUTEROL [Concomitant]
  18. CELEBREX [Concomitant]
  19. CIPROFLOXACIN [Concomitant]
  20. METFORMIN [Concomitant]
  21. COREG [Concomitant]
  22. FOSINOPRIL SODIUM [Concomitant]
  23. FUROSEMIDE [Concomitant]
  24. ISOSORBIDE [Concomitant]
  25. METOLAZONE [Concomitant]

REACTIONS (14)
  - ATRIAL FIBRILLATION [None]
  - BLOOD CREATININE INCREASED [None]
  - BLOOD UREA INCREASED [None]
  - CARDIOACTIVE DRUG LEVEL INCREASED [None]
  - CARDIOMYOPATHY [None]
  - DEHYDRATION [None]
  - ECONOMIC PROBLEM [None]
  - EMOTIONAL DISORDER [None]
  - INJURY [None]
  - PAIN [None]
  - SLEEP APNOEA SYNDROME [None]
  - SOCIAL AVOIDANT BEHAVIOUR [None]
  - THERAPEUTIC AGENT TOXICITY [None]
  - UNEVALUABLE EVENT [None]
